FAERS Safety Report 12633293 (Version 2)
Quarter: 2016Q3

REPORT INFORMATION
  Report Type: Spontaneous
  Country: US (occurrence: US)
  Receive Date: 20160808
  Receipt Date: 20160808
  Transmission Date: 20161109
  Serious: No
  Sender: FDA-Public Use
  Company Number: US-BEH-2016060415

PATIENT
  Sex: Female
  Weight: 79 kg

DRUGS (36)
  1. LIDOCAINE. [Concomitant]
     Active Substance: LIDOCAINE
  2. MAGNESIUM [Concomitant]
     Active Substance: MAGNESIUM
  3. COMPLETE MULTIVITAMIN [Concomitant]
     Active Substance: VITAMINS
  4. B100 COMPLEX [Concomitant]
     Active Substance: MINERALS\VITAMINS
  5. IBUPROFEN. [Concomitant]
     Active Substance: IBUPROFEN
  6. FIORICET [Concomitant]
     Active Substance: ACETAMINOPHEN\BUTALBITAL\CAFFEINE
  7. ALBUTEROL. [Concomitant]
     Active Substance: ALBUTEROL
  8. OMEGA-3 FISH OIL [Concomitant]
     Active Substance: FISH OIL\OMEGA-3 FATTY ACIDS
  9. PRAVASTATIN. [Concomitant]
     Active Substance: PRAVASTATIN
  10. TYLENOL PM EX-STRENTH [Concomitant]
  11. LOVAZA [Concomitant]
     Active Substance: OMEGA-3-ACID ETHYL ESTERS
  12. DIPHENHYDRAMINE. [Concomitant]
     Active Substance: DIPHENHYDRAMINE
  13. DOXYCYCLINE. [Concomitant]
     Active Substance: DOXYCYCLINE
  14. LIDOCAINE/PRILOCAINE [Concomitant]
     Active Substance: LIDOCAINE\PRILOCAINE
  15. VERAPAMIL ER [Concomitant]
     Active Substance: VERAPAMIL HYDROCHLORIDE
  16. ALLEGRA [Concomitant]
     Active Substance: FEXOFENADINE HYDROCHLORIDE
  17. VERAMYST [Concomitant]
     Active Substance: FLUTICASONE FUROATE
  18. PRISTIQ EXTENDED-RELEASE [Concomitant]
     Active Substance: DESVENLAFAXINE SUCCINATE
  19. BUTALBITAL-ACETAMINOPHEN-CAFFE [Concomitant]
  20. NITROFURANTOIN. [Concomitant]
     Active Substance: NITROFURANTOIN
  21. FLOVENT [Concomitant]
     Active Substance: FLUTICASONE PROPIONATE
  22. IBUPROFEN. [Concomitant]
     Active Substance: IBUPROFEN
  23. HIZENTRA [Suspect]
     Active Substance: HUMAN IMMUNOGLOBULIN G
     Indication: IMMUNODEFICIENCY COMMON VARIABLE
     Route: 058
  24. EPIPEN [Concomitant]
     Active Substance: EPINEPHRINE
  25. MUCINEX [Concomitant]
     Active Substance: GUAIFENESIN
  26. HIZENTRA [Suspect]
     Active Substance: HUMAN IMMUNOGLOBULIN G
     Indication: HYPOGAMMAGLOBULINAEMIA
     Route: 058
  27. LORAZEPAM. [Concomitant]
     Active Substance: LORAZEPAM
  28. ADVAIR HFA [Concomitant]
     Active Substance: FLUTICASONE PROPIONATE\SALMETEROL XINAFOATE
  29. ACYCLOVIR. [Concomitant]
     Active Substance: ACYCLOVIR
  30. DIGESTIVE PROBIOTIC [Concomitant]
  31. AMITRIPTYLINE [Concomitant]
     Active Substance: AMITRIPTYLINE
  32. MECLIZINE [Concomitant]
     Active Substance: MECLIZINE HYDROCHLORIDE
  33. VITAMIN B12 [Concomitant]
     Active Substance: CYANOCOBALAMIN
  34. ISOMETHEPT-DICHLORALP-ACETAMIN [Concomitant]
  35. PROAIR HFA [Concomitant]
     Active Substance: ALBUTEROL SULFATE
  36. ZOVIRAX [Concomitant]
     Active Substance: ACYCLOVIR

REACTIONS (1)
  - Urinary tract infection [Unknown]
